FAERS Safety Report 4495981-4 (Version None)
Quarter: 2004Q4

REPORT INFORMATION
  Report Type: 
  Country: None (occurrence: None)
  Receive Date: 20041108
  Receipt Date: 20041103
  Transmission Date: 20050328
  Serious: Yes (Hospitalization)
  Sender: FDA-Public Use
  Company Number: PHBS2004FI14714

PATIENT
  Age: 52 Year
  Sex: Female

DRUGS (1)
  1. DIOVAN COMP [Suspect]
     Indication: HYPERTENSION
     Dosage: 1 TABLET, QD
     Route: 048
     Dates: start: 20040301, end: 20041001

REACTIONS (11)
  - ABNORMAL CHEST SOUND [None]
  - ALVEOLITIS FIBROSING [None]
  - BRONCHITIS [None]
  - COUGH [None]
  - CRYPTOGENIC ORGANIZING PNEUMONIA [None]
  - DYSPNOEA [None]
  - FACE OEDEMA [None]
  - LUNG INFILTRATION [None]
  - OEDEMA PERIPHERAL [None]
  - PNEUMONIA [None]
  - PYREXIA [None]
